FAERS Safety Report 7838160-2 (Version None)
Quarter: 2011Q4

REPORT INFORMATION
  Report Type: 
  Country: None (occurrence: None)
  Receive Date: 20111024
  Receipt Date: 20111018
  Transmission Date: 20120403
  Serious: Yes (Other)
  Sender: FDA-Public Use
  Company Number: US-AMGEN-USASP2011047632

PATIENT
  Sex: Male
  Weight: 82 kg

DRUGS (3)
  1. TACLONEX [Concomitant]
     Dosage: UNK
     Route: 048
  2. ENBREL [Suspect]
     Indication: PSORIASIS
     Dosage: 50 MG, QWK
     Dates: start: 20090414, end: 20110913
  3. PREVACID [Concomitant]
     Dosage: UNK
     Dates: start: 20090407

REACTIONS (1)
  - PANCREATITIS ACUTE [None]
